FAERS Safety Report 5836295-7 (Version None)
Quarter: 2008Q3

REPORT INFORMATION
  Report Type: 
  Country: None (occurrence: None)
  Receive Date: 20080801
  Receipt Date: 20080502
  Transmission Date: 20090109
  Serious: Yes (Other)
  Sender: FDA-Public Use
  Company Number: 170905USA

PATIENT
  Age: 44 Year
  Sex: Female

DRUGS (3)
  1. ZOLPIDEM TARTRATE [Suspect]
     Indication: SLEEP DISORDER
     Dosage: (1 AS REQUIRED)
     Dates: start: 20071001, end: 20071203
  2. VICODIN [Concomitant]
  3. CLONAZEPAM [Concomitant]

REACTIONS (4)
  - ACCIDENT [None]
  - INCOHERENT [None]
  - ROAD TRAFFIC ACCIDENT [None]
  - SOMNAMBULISM [None]
